FAERS Safety Report 16232495 (Version 2)
Quarter: 2019Q2

REPORT INFORMATION
  Report Type: Report from Study
  Country: US (occurrence: US)
  Receive Date: 20190424
  Receipt Date: 20190612
  Transmission Date: 20190711
  Serious: Yes (Hospitalization, Other)
  Sender: FDA-Public Use
  Company Number: US-KYOWAKIRIN-2018CKK004284

PATIENT

DRUGS (1)
  1. MOGAMULIZUMAB [Suspect]
     Active Substance: MOGAMULIZUMAB
     Indication: CUTANEOUS T-CELL LYMPHOMA
     Dosage: 1 UNK
     Dates: start: 20150903, end: 20151210

REACTIONS (7)
  - Eye infection [Unknown]
  - Febrile neutropenia [Recovered/Resolved]
  - Graft versus host disease in eye [Unknown]
  - Graft versus host disease in skin [Unknown]
  - Graft versus host disease [Unknown]
  - Genital lesion [Unknown]
  - Stem cell transplant [Unknown]

NARRATIVE: CASE EVENT DATE: 20180629
